FAERS Safety Report 20245255 (Version 1)
Quarter: 2021Q4

REPORT INFORMATION
  Report Type: Spontaneous
  Country: US (occurrence: US)
  Receive Date: 20211229
  Receipt Date: 20211229
  Transmission Date: 20220303
  Serious: No
  Sender: FDA-Public Use
  Company Number: US-CELGENE-USA-20211207307

PATIENT
  Sex: Female
  Weight: 59.020 kg

DRUGS (64)
  1. REVLIMID [Suspect]
     Active Substance: LENALIDOMIDE
     Indication: Plasma cell myeloma
     Dosage: 25 MILLIGRAM
     Route: 048
     Dates: start: 201403
  2. REVLIMID [Suspect]
     Active Substance: LENALIDOMIDE
     Dosage: 10 MILLIGRAM
     Route: 048
     Dates: start: 201501
  3. REVLIMID [Suspect]
     Active Substance: LENALIDOMIDE
     Dosage: 20 MILLIGRAM
     Route: 048
     Dates: start: 201508
  4. REVLIMID [Suspect]
     Active Substance: LENALIDOMIDE
     Dosage: 15 MILLIGRAM
     Route: 048
     Dates: start: 201509
  5. REVLIMID [Suspect]
     Active Substance: LENALIDOMIDE
     Dosage: 5 MILLIGRAM
     Route: 048
     Dates: start: 201512
  6. REVLIMID [Suspect]
     Active Substance: LENALIDOMIDE
     Dosage: 10 MILLIGRAM
     Route: 048
     Dates: start: 201601
  7. REVLIMID [Suspect]
     Active Substance: LENALIDOMIDE
     Dosage: 5 MILLIGRAM
     Route: 048
     Dates: start: 201606
  8. REVLIMID [Suspect]
     Active Substance: LENALIDOMIDE
     Dosage: 10 MILLIGRAM
     Route: 048
     Dates: start: 201607
  9. AMITRIPTYLINE HYDROCHLORIDE [Concomitant]
     Active Substance: AMITRIPTYLINE HYDROCHLORIDE
     Indication: Product used for unknown indication
     Route: 065
  10. AMITRIPTYLINE HYDROCHLORIDE [Concomitant]
     Active Substance: AMITRIPTYLINE HYDROCHLORIDE
     Dosage: 10 MILLIGRAM
     Route: 048
     Dates: start: 201501
  11. AMITRIPTYLINE HYDROCHLORIDE [Concomitant]
     Active Substance: AMITRIPTYLINE HYDROCHLORIDE
     Dosage: 20 MILLIGRAM
     Route: 048
     Dates: start: 201508
  12. AMITRIPTYLINE HYDROCHLORIDE [Concomitant]
     Active Substance: AMITRIPTYLINE HYDROCHLORIDE
     Dosage: 15 MILLIGRAM
     Route: 048
     Dates: start: 201509
  13. AMITRIPTYLINE HYDROCHLORIDE [Concomitant]
     Active Substance: AMITRIPTYLINE HYDROCHLORIDE
     Dosage: 5 MILLIGRAM
     Route: 048
     Dates: start: 201512
  14. AMITRIPTYLINE HYDROCHLORIDE [Concomitant]
     Active Substance: AMITRIPTYLINE HYDROCHLORIDE
     Dosage: 10 MILLIGRAM
     Route: 048
     Dates: start: 201601
  15. AMITRIPTYLINE HYDROCHLORIDE [Concomitant]
     Active Substance: AMITRIPTYLINE HYDROCHLORIDE
     Dosage: 5 MILLIGRAM
     Route: 048
     Dates: start: 201606
  16. AMITRIPTYLINE HYDROCHLORIDE [Concomitant]
     Active Substance: AMITRIPTYLINE HYDROCHLORIDE
     Dosage: 10 MILLIGRAM
     Route: 048
     Dates: start: 201607
  17. OMEPRAZOLE [Concomitant]
     Active Substance: OMEPRAZOLE
     Indication: Product used for unknown indication
     Route: 065
  18. OMEPRAZOLE [Concomitant]
     Active Substance: OMEPRAZOLE
     Dosage: 10 MILLIGRAM
     Route: 048
     Dates: start: 201501
  19. OMEPRAZOLE [Concomitant]
     Active Substance: OMEPRAZOLE
     Dosage: 20 MILLIGRAM
     Route: 048
     Dates: start: 201508
  20. OMEPRAZOLE [Concomitant]
     Active Substance: OMEPRAZOLE
     Dosage: 15 MILLIGRAM
     Route: 048
     Dates: start: 201509
  21. OMEPRAZOLE [Concomitant]
     Active Substance: OMEPRAZOLE
     Dosage: 5 MILLIGRAM
     Route: 048
     Dates: start: 201512
  22. OMEPRAZOLE [Concomitant]
     Active Substance: OMEPRAZOLE
     Dosage: 10 MILLIGRAM
     Route: 048
     Dates: start: 201601
  23. OMEPRAZOLE [Concomitant]
     Active Substance: OMEPRAZOLE
     Dosage: 5 MILLIGRAM
     Route: 048
     Dates: start: 201606
  24. OMEPRAZOLE [Concomitant]
     Active Substance: OMEPRAZOLE
     Dosage: 10 MILLIGRAM
     Route: 048
     Dates: start: 201607
  25. DIAZEPAM [Concomitant]
     Active Substance: DIAZEPAM
     Indication: Product used for unknown indication
     Route: 065
  26. DIAZEPAM [Concomitant]
     Active Substance: DIAZEPAM
     Dosage: 10 MILLIGRAM
     Route: 048
     Dates: start: 201501
  27. DIAZEPAM [Concomitant]
     Active Substance: DIAZEPAM
     Dosage: 20 MILLIGRAM
     Route: 048
     Dates: start: 201508
  28. DIAZEPAM [Concomitant]
     Active Substance: DIAZEPAM
     Dosage: 15 MILLIGRAM
     Route: 048
     Dates: start: 201509
  29. DIAZEPAM [Concomitant]
     Active Substance: DIAZEPAM
     Dosage: 5 MILLIGRAM
     Route: 048
     Dates: start: 201512
  30. DIAZEPAM [Concomitant]
     Active Substance: DIAZEPAM
     Dosage: 10 MILLIGRAM
     Route: 048
     Dates: start: 201601
  31. DIAZEPAM [Concomitant]
     Active Substance: DIAZEPAM
     Dosage: 5 MILLIGRAM
     Route: 048
     Dates: start: 201606
  32. DIAZEPAM [Concomitant]
     Active Substance: DIAZEPAM
     Dosage: 10 MILLIGRAM
     Route: 048
     Dates: start: 201607
  33. PRAVASTATIN [Concomitant]
     Active Substance: PRAVASTATIN
     Indication: Product used for unknown indication
     Route: 065
  34. PRAVASTATIN [Concomitant]
     Active Substance: PRAVASTATIN
     Dosage: 10 MILLIGRAM
     Route: 048
     Dates: start: 201501
  35. PRAVASTATIN [Concomitant]
     Active Substance: PRAVASTATIN
     Dosage: 20 MILLIGRAM
     Route: 048
     Dates: start: 201508
  36. PRAVASTATIN [Concomitant]
     Active Substance: PRAVASTATIN
     Dosage: 15 MILLIGRAM
     Route: 048
     Dates: start: 201509
  37. PRAVASTATIN [Concomitant]
     Active Substance: PRAVASTATIN
     Dosage: 5 MILLIGRAM
     Route: 048
     Dates: start: 201512
  38. PRAVASTATIN [Concomitant]
     Active Substance: PRAVASTATIN
     Dosage: 10 MILLIGRAM
     Route: 048
     Dates: start: 201601
  39. PRAVASTATIN [Concomitant]
     Active Substance: PRAVASTATIN
     Dosage: 5 MILLIGRAM
     Route: 048
     Dates: start: 201606
  40. PRAVASTATIN [Concomitant]
     Active Substance: PRAVASTATIN
     Dosage: 10 MILLIGRAM
     Route: 048
     Dates: start: 201607
  41. ATENOLOL [Concomitant]
     Active Substance: ATENOLOL
     Indication: Product used for unknown indication
     Route: 065
  42. ATENOLOL [Concomitant]
     Active Substance: ATENOLOL
     Dosage: 10 MILLIGRAM
     Route: 048
     Dates: start: 201501
  43. ATENOLOL [Concomitant]
     Active Substance: ATENOLOL
     Dosage: 20 MILLIGRAM
     Route: 048
     Dates: start: 201508
  44. ATENOLOL [Concomitant]
     Active Substance: ATENOLOL
     Dosage: 15 MILLIGRAM
     Route: 048
     Dates: start: 201509
  45. ATENOLOL [Concomitant]
     Active Substance: ATENOLOL
     Dosage: 5 MILLIGRAM
     Route: 048
     Dates: start: 201512
  46. ATENOLOL [Concomitant]
     Active Substance: ATENOLOL
     Dosage: 10 MILLIGRAM
     Route: 048
     Dates: start: 201601
  47. ATENOLOL [Concomitant]
     Active Substance: ATENOLOL
     Dosage: 5 MILLIGRAM
     Route: 048
     Dates: start: 201606
  48. ATENOLOL [Concomitant]
     Active Substance: ATENOLOL
     Dosage: 10 MILLIGRAM
     Route: 048
     Dates: start: 201607
  49. ASPIRIN [Concomitant]
     Active Substance: ASPIRIN
     Indication: Product used for unknown indication
     Route: 065
  50. ASPIRIN [Concomitant]
     Active Substance: ASPIRIN
     Dosage: 10 MILLIGRAM
     Route: 048
     Dates: start: 201501
  51. ASPIRIN [Concomitant]
     Active Substance: ASPIRIN
     Dosage: 20 MILLIGRAM
     Route: 048
     Dates: start: 201508
  52. ASPIRIN [Concomitant]
     Active Substance: ASPIRIN
     Dosage: 15 MILLIGRAM
     Route: 048
     Dates: start: 201509
  53. ASPIRIN [Concomitant]
     Active Substance: ASPIRIN
     Dosage: 5 MILLIGRAM
     Route: 048
     Dates: start: 201512
  54. ASPIRIN [Concomitant]
     Active Substance: ASPIRIN
     Dosage: 10 MILLIGRAM
     Route: 048
     Dates: start: 201601
  55. ASPIRIN [Concomitant]
     Active Substance: ASPIRIN
     Dosage: 5 MILLIGRAM
     Route: 048
     Dates: start: 201606
  56. ASPIRIN [Concomitant]
     Active Substance: ASPIRIN
     Dosage: 10 MILLIGRAM
     Route: 048
     Dates: start: 201607
  57. FLUOXETINE [Concomitant]
     Active Substance: FLUOXETINE HYDROCHLORIDE
     Indication: Product used for unknown indication
     Route: 065
  58. FLUOXETINE [Concomitant]
     Active Substance: FLUOXETINE HYDROCHLORIDE
     Dosage: 10 MILLIGRAM
     Route: 048
     Dates: start: 201501
  59. FLUOXETINE [Concomitant]
     Active Substance: FLUOXETINE HYDROCHLORIDE
     Dosage: 20 MILLIGRAM
     Route: 048
     Dates: start: 201508
  60. FLUOXETINE [Concomitant]
     Active Substance: FLUOXETINE HYDROCHLORIDE
     Dosage: 15 MILLIGRAM
     Route: 048
     Dates: start: 201509
  61. FLUOXETINE [Concomitant]
     Active Substance: FLUOXETINE HYDROCHLORIDE
     Dosage: 5 MILLIGRAM
     Route: 048
     Dates: start: 201512
  62. FLUOXETINE [Concomitant]
     Active Substance: FLUOXETINE HYDROCHLORIDE
     Dosage: 10 MILLIGRAM
     Route: 048
     Dates: start: 201601
  63. FLUOXETINE [Concomitant]
     Active Substance: FLUOXETINE HYDROCHLORIDE
     Dosage: 5 MILLIGRAM
     Route: 048
     Dates: start: 201606
  64. FLUOXETINE [Concomitant]
     Active Substance: FLUOXETINE HYDROCHLORIDE
     Dosage: 10 MILLIGRAM
     Route: 048
     Dates: start: 201607

REACTIONS (1)
  - Pyrexia [Unknown]
